FAERS Safety Report 14242163 (Version 1)
Quarter: 2017Q4

REPORT INFORMATION
  Report Type: Spontaneous
  Country: US (occurrence: US)
  Receive Date: 20171130
  Receipt Date: 20171130
  Transmission Date: 20180321
  Serious: Yes (Other)
  Sender: FDA-Public Use
  Company Number: None

PATIENT
  Age: 57 Year
  Sex: Female
  Weight: 67.5 kg

DRUGS (8)
  1. MULTI VITAMIN [Concomitant]
     Active Substance: VITAMINS
  2. CLONAZAPINE [Concomitant]
  3. CYMBALTA [Concomitant]
     Active Substance: DULOXETINE HYDROCHLORIDE
  4. GABAPENTINE [Concomitant]
     Active Substance: GABAPENTIN
  5. ADDERALL [Concomitant]
     Active Substance: AMPHETAMINE ASPARTATE\AMPHETAMINE SULFATE\DEXTROAMPHETAMINE SACCHARATE\DEXTROAMPHETAMINE SULFATE
  6. PROBIOTIC [Concomitant]
     Active Substance: PROBIOTICS NOS
  7. DEXTROAMPHET SACCHARAT, AMPHET ASPARTATE, DEXTROAMPHET SULFATE AND AMPHET SULFAT [Suspect]
     Active Substance: AMPHETAMINE ASPARTATE\AMPHETAMINE SULFATE\DEXTROAMPHETAMINE SACCHARATE\DEXTROAMPHETAMINE SULFATE
     Indication: ATTENTION DEFICIT/HYPERACTIVITY DISORDER
     Dosage: ?          QUANTITY:60 TABLET(S);?
     Route: 048
  8. LINZESS [Concomitant]
     Active Substance: LINACLOTIDE

REACTIONS (4)
  - Vomiting [None]
  - Nausea [None]
  - Product substitution issue [None]
  - Anxiety [None]

NARRATIVE: CASE EVENT DATE: 20171124
